FAERS Safety Report 7460022-3 (Version None)
Quarter: 2011Q2

REPORT INFORMATION
  Report Type: 
  Country: None (occurrence: None)
  Receive Date: 20110505
  Receipt Date: 20110430
  Transmission Date: 20111010
  Serious: No
  Sender: FDA-Public Use
  Company Number: US-TEVA-279771USA

PATIENT
  Sex: Female
  Weight: 78.996 kg

DRUGS (2)
  1. PLAN B ONE-STEP [Suspect]
     Indication: POST COITAL CONTRACEPTION
     Dosage: 1.5 MILLIGRAM;
     Route: 048
     Dates: start: 20110420, end: 20110420
  2. ORTHO TRI-CYCLEN [Concomitant]
     Indication: ORAL CONTRACEPTION

REACTIONS (6)
  - MENORRHAGIA [None]
  - HEADACHE [None]
  - ABDOMINAL PAIN [None]
  - DIZZINESS [None]
  - VOMITING [None]
  - BREAST PAIN [None]
